FAERS Safety Report 9912141 (Version 1)
Quarter: 2014Q1

REPORT INFORMATION
  Report Type: Spontaneous
  Country: GB (occurrence: GB)
  Receive Date: 20140220
  Receipt Date: 20140220
  Transmission Date: 20141002
  Serious: Yes (Disabling, Other)
  Sender: FDA-Public Use
  Company Number: GB-BRISTOL-MYERS SQUIBB COMPANY-20145595

PATIENT
  Age: 75 Year
  Sex: Male
  Weight: 105 kg

DRUGS (3)
  1. APIXABAN [Suspect]
     Route: 048
     Dates: start: 20131216, end: 20140123
  2. DIGOXIN [Concomitant]
  3. BISOPROLOL [Concomitant]

REACTIONS (1)
  - Gouty arthritis [Not Recovered/Not Resolved]
